FAERS Safety Report 15814809 (Version 1)
Quarter: 2019Q1

REPORT INFORMATION
  Report Type: Spontaneous
  Country: US (occurrence: US)
  Receive Date: 20190111
  Receipt Date: 20190111
  Transmission Date: 20190417
  Serious: Yes (Death)
  Sender: FDA-Public Use
  Company Number: US-INSYS THERAPEUTICS, INC-INS201901-000013

PATIENT
  Sex: Female

DRUGS (8)
  1. NORBUPRENORPHINE [Suspect]
     Active Substance: NORBUPRENORPHINE
  2. MORPHINE [Suspect]
     Active Substance: MORPHINE
  3. 6-MONO-ACETYLMORPHINE [Suspect]
     Active Substance: 6-ACETYLMORPHINE
  4. MORPHINE [Suspect]
     Active Substance: MORPHINE
     Dosage: 11 NG/ML (VITREOUS)
  5. FENTANYL. [Suspect]
     Active Substance: FENTANYL
     Indication: PRODUCT USED FOR UNKNOWN INDICATION
  6. TRAZODONE [Suspect]
     Active Substance: TRAZODONE HYDROCHLORIDE
  7. CYCLOPROPYLFENTANYL [Suspect]
     Active Substance: CYCLOPROPYLFENTANYL
  8. BUPRENORPHINE. [Suspect]
     Active Substance: BUPRENORPHINE

REACTIONS (1)
  - Death [Fatal]

NARRATIVE: CASE EVENT DATE: 2017
